FAERS Safety Report 7332727 (Version 3)
Quarter: 2013Q1

REPORT INFORMATION
  Report Type: Spontaneous
  Country: CA (occurrence: CA)
  Receive Date: 20100326
  Receipt Date: 20130307
  Transmission Date: 20140127
  Serious: Yes (Hospitalization)
  Sender: FDA-Public Use
  Company Number: CA-BAYER-200937360NA

PATIENT
  Age: 42 Year
  Sex: Female

DRUGS (6)
  1. YAZ [Suspect]
     Indication: CONTRACEPTION
     Route: 048
     Dates: start: 200902, end: 20090907
  2. YAZ [Suspect]
     Indication: ACNE
  3. YAZ [Suspect]
     Indication: MENSTRUAL DISORDER
  4. YASMIN [Suspect]
  5. VENLAFAXINE [Concomitant]
  6. ZOPICLONE [Concomitant]

REACTIONS (5)
  - Transient ischaemic attack [Recovered/Resolved]
  - Hemiparesis [Recovered/Resolved]
  - Aphasia [Recovered/Resolved]
  - Headache [Recovered/Resolved]
  - Acne [Unknown]
